FAERS Safety Report 25950556 (Version 1)
Quarter: 2025Q4

REPORT INFORMATION
  Report Type: Spontaneous
  Country: US (occurrence: US)
  Receive Date: 20251023
  Receipt Date: 20251023
  Transmission Date: 20260117
  Serious: No
  Sender: CELLTRION
  Company Number: US-CELLTRION INC.-2024US024959

PATIENT

DRUGS (1)
  1. INFLECTRA [Suspect]
     Active Substance: INFLIXIMAB-DYYB
     Indication: Colitis ulcerative
     Dosage: DOSE: UNKNOWN, FREQUENCY: EVERY 6 TO 8 WEEKS
     Route: 042
     Dates: start: 202408

REACTIONS (1)
  - Therapy interrupted [Unknown]
